FAERS Safety Report 20729250 (Version 2)
Quarter: 2022Q2

REPORT INFORMATION
  Report Type: Spontaneous
  Country: CA (occurrence: CA)
  Receive Date: 20220420
  Receipt Date: 20220422
  Transmission Date: 20220721
  Serious: Yes (Hospitalization)
  Sender: FDA-Public Use
  Company Number: CA-BAXTER-2022BAX008651

PATIENT
  Age: 63 Year
  Sex: Female

DRUGS (2)
  1. DOXORUBICIN HYDROCHLORIDE [Suspect]
     Active Substance: DOXORUBICIN HYDROCHLORIDE
     Indication: Synovial sarcoma
     Dosage: SIX CYCLES
     Route: 065
  2. IFEX [Suspect]
     Active Substance: IFOSFAMIDE
     Indication: Synovial sarcoma
     Dosage: SIX CYCLES
     Route: 065

REACTIONS (3)
  - Cystitis haemorrhagic [Unknown]
  - Febrile neutropenia [Unknown]
  - Anaemia [Unknown]
